FAERS Safety Report 15412870 (Version 3)
Quarter: 2019Q1

REPORT INFORMATION
  Report Type: Spontaneous
  Country: US (occurrence: US)
  Receive Date: 20180921
  Receipt Date: 20190221
  Transmission Date: 20190417
  Serious: Yes (Hospitalization, Other)
  Sender: FDA-Public Use
  Company Number: US-PFIZER INC-2018378775

PATIENT
  Age: 62 Year
  Sex: Male

DRUGS (8)
  1. ADVIL [Suspect]
     Active Substance: IBUPROFEN
     Indication: PAIN
  2. AMBIEN [Concomitant]
     Active Substance: ZOLPIDEM TARTRATE
     Dosage: UNK
     Dates: start: 20170902
  3. AMBIEN [Concomitant]
     Active Substance: ZOLPIDEM TARTRATE
     Dosage: 10 MG, 1X/DAY (BEDTIME)
     Route: 048
     Dates: start: 20180810
  4. ADVIL [Suspect]
     Active Substance: IBUPROFEN
     Indication: ARTHRALGIA
     Dosage: UNK
  5. ADVIL [Suspect]
     Active Substance: IBUPROFEN
     Indication: PAIN
  6. CIPR [Concomitant]
     Dosage: UNK
     Route: 042
     Dates: start: 20180811, end: 20180811
  7. PRAVACHOL [Concomitant]
     Active Substance: PRAVASTATIN SODIUM
     Dosage: UNK
     Dates: start: 20170902
  8. METRI [Concomitant]
     Dosage: UNK
     Dates: start: 20180811, end: 20180811

REACTIONS (10)
  - Blood calcium decreased [Unknown]
  - Systemic inflammatory response syndrome [Unknown]
  - Pulmonary mass [Unknown]
  - Nephrolithiasis [Unknown]
  - Haemorrhagic anaemia [Unknown]
  - Duodenal ulcer haemorrhage [Unknown]
  - Leukocytosis [Unknown]
  - Blood potassium decreased [Unknown]
  - Hyperlipidaemia [Unknown]
  - Blood glucose increased [Unknown]

NARRATIVE: CASE EVENT DATE: 20180811
